FAERS Safety Report 6612841-0 (Version None)
Quarter: 2010Q1

REPORT INFORMATION
  Report Type: 
  Country: None (occurrence: None)
  Receive Date: 20100303
  Receipt Date: 20100226
  Transmission Date: 20100710
  Serious: Yes (Congenital Anomaly)
  Sender: FDA-Public Use
  Company Number: FR-GILEAD-2010-0026428

PATIENT
  Sex: Female

DRUGS (3)
  1. TRUVADA [Suspect]
     Indication: HIV INFECTION
     Route: 064
  2. INVIRASE [Suspect]
     Route: 064
  3. NORVIR [Suspect]
     Route: 064

REACTIONS (2)
  - OESOPHAGEAL ATRESIA [None]
  - SPINE MALFORMATION [None]
